FAERS Safety Report 13513831 (Version 1)
Quarter: 2017Q2

REPORT INFORMATION
  Report Type: Spontaneous
  Country: US (occurrence: US)
  Receive Date: 20170504
  Receipt Date: 20170504
  Transmission Date: 20170830
  Serious: No
  Sender: FDA-Public Use
  Company Number: US-PFIZER INC-2017187064

PATIENT
  Age: 62 Year
  Sex: Female

DRUGS (2)
  1. AMMONIUM LACTATE. [Suspect]
     Active Substance: AMMONIUM LACTATE
     Dosage: UNK UNK, 2X/DAY
  2. HYDROCORTISONE ACETATE. [Suspect]
     Active Substance: HYDROCORTISONE ACETATE
     Dosage: 1 %, AS NEEDED (1% 3X A DAY)

REACTIONS (2)
  - Cardiac disorder [Unknown]
  - Lung disorder [Unknown]
